FAERS Safety Report 13475897 (Version 1)
Quarter: 2017Q2

REPORT INFORMATION
  Report Type: Spontaneous
  Country: US (occurrence: US)
  Receive Date: 20170425
  Receipt Date: 20170425
  Transmission Date: 20170830
  Serious: Yes (Other)
  Sender: FDA-Public Use
  Company Number: US-ZYDUS-014653

PATIENT
  Age: 10 Year
  Sex: Male

DRUGS (3)
  1. RISPERIDONE. [Suspect]
     Active Substance: RISPERIDONE
     Indication: MANIA
     Dosage: OVER 2 YEARS, RISPERIDONE WAS TITRATED TO A TOTAL DAILY DOSE OF 1.5 MG
     Route: 065
  2. RISPERIDONE. [Suspect]
     Active Substance: RISPERIDONE
     Indication: MANIA
     Dosage: OVER 2 YEARS, RISPERIDONE WAS TITRATED TO A TOTAL DAILY DOSE OF 1.5 MG
     Route: 065
  3. METFORMIN [Suspect]
     Active Substance: METFORMIN HYDROCHLORIDE
     Indication: METABOLIC SYNDROME
     Route: 065

REACTIONS (7)
  - Weight increased [Unknown]
  - Urticaria [Recovered/Resolved]
  - Metabolic syndrome [Unknown]
  - Increased appetite [Unknown]
  - Type I hypersensitivity [Recovered/Resolved]
  - Rash papular [Recovered/Resolved]
  - Flushing [Recovered/Resolved]
